FAERS Safety Report 8570813-3 (Version None)
Quarter: 2012Q3

REPORT INFORMATION
  Report Type: 
  Country: None (occurrence: None)
  Receive Date: 20120806
  Receipt Date: 20120725
  Transmission Date: 20120928
  Serious: No
  Sender: FDA-Public Use
  Company Number: US-009507513-1207USA011504

PATIENT

DRUGS (2)
  1. SINGULAIR [Suspect]
     Indication: ASTHMA
     Dosage: 5 MG, QD
     Route: 048
     Dates: start: 20120401, end: 20120718
  2. PROVENTIL [Concomitant]

REACTIONS (4)
  - DISTURBANCE IN ATTENTION [None]
  - IRRITABILITY [None]
  - PERSONALITY CHANGE [None]
  - INSOMNIA [None]
